FAERS Safety Report 8228649-9 (Version None)
Quarter: 2012Q1

REPORT INFORMATION
  Report Type: 
  Country: None (occurrence: None)
  Receive Date: 20120322
  Receipt Date: 20110422
  Transmission Date: 20120608
  Serious: Yes (Hospitalization, Other)
  Sender: FDA-Public Use
  Company Number: US-BRISTOL-MYERS SQUIBB COMPANY-15543549

PATIENT
  Age: 61 Year
  Sex: Male

DRUGS (1)
  1. ERBITUX [Suspect]
     Indication: COLON CANCER
     Dosage: TAKEN LOADING DOSE
     Route: 042
     Dates: start: 20110203, end: 20110101

REACTIONS (6)
  - FLUSHING [None]
  - CONVULSION [None]
  - LOSS OF CONSCIOUSNESS [None]
  - URINARY INCONTINENCE [None]
  - PARAESTHESIA [None]
  - CIRCULATORY COLLAPSE [None]
